FAERS Safety Report 8171242-7 (Version None)
Quarter: 2012Q1

REPORT INFORMATION
  Report Type: 
  Country: None (occurrence: None)
  Receive Date: 20120228
  Receipt Date: 20120216
  Transmission Date: 20120608
  Serious: Yes (Life-Threatening, Hospitalization, Other)
  Sender: FDA-Public Use
  Company Number: PT-MEDIMMUNE-MEDI-0014771

PATIENT
  Sex: Male
  Weight: 4.5 kg

DRUGS (3)
  1. BUDESONIDE [Concomitant]
     Indication: ANTIINFLAMMATORY THERAPY
     Dates: start: 20120121, end: 20120202
  2. SYNAGIS [Suspect]
     Route: 030
     Dates: start: 20111026, end: 20120117
  3. PROCATEROL HCL [Concomitant]
     Dates: start: 20120121, end: 20120202

REACTIONS (6)
  - DRUG INEFFECTIVE [None]
  - LARYNGOMALACIA [None]
  - RESPIRATORY SYNCYTIAL VIRUS BRONCHIOLITIS [None]
  - RESPIRATORY DISTRESS [None]
  - CYANOSIS [None]
  - PYREXIA [None]
